FAERS Safety Report 4578715-4 (Version None)
Quarter: 2005Q1

REPORT INFORMATION
  Report Type: 
  Country: None (occurrence: None)
  Receive Date: 20050211
  Receipt Date: 20050207
  Transmission Date: 20050727
  Serious: Yes (Other)
  Sender: FDA-Public Use
  Company Number: US-GLAXOSMITHKLINE-A0544234A

PATIENT
  Sex: Male

DRUGS (3)
  1. WELLBUTRIN [Suspect]
     Indication: DEPRESSION
     Dosage: 300MG PER DAY
     Route: 048
  2. SEROQUEL [Concomitant]
  3. ASTHMA MEDICATION [Concomitant]

REACTIONS (3)
  - CONVULSION [None]
  - LETHARGY [None]
  - SEDATION [None]
